FAERS Safety Report 24025675 (Version 1)
Quarter: 2024Q2

REPORT INFORMATION
  Report Type: Report from Study
  Country: US (occurrence: US)
  Receive Date: 20240628
  Receipt Date: 20240628
  Transmission Date: 20240715
  Serious: No
  Sender: FDA-Public Use
  Company Number: US-ROCHE-3412855

PATIENT
  Age: 61 Year
  Sex: Female
  Weight: 55.34 kg

DRUGS (1)
  1. ALECENSA [Suspect]
     Active Substance: ALECTINIB HYDROCHLORIDE
     Indication: Lung neoplasm malignant
     Dosage: TAKES 4 TABLETS, TWICE A DAY ;ONGOING: YES, 600 MG IN MORNING AND EVENING
     Route: 048
     Dates: start: 202003

REACTIONS (2)
  - Back pain [Not Recovered/Not Resolved]
  - Myalgia [Not Recovered/Not Resolved]
